FAERS Safety Report 10634267 (Version 1)
Quarter: 2014Q4

REPORT INFORMATION
  Report Type: Spontaneous
  Country: US (occurrence: None)
  Receive Date: 20141121
  Receipt Date: 20141121
  Transmission Date: 20150529
  Serious: No
  Sender: FDA-Public Use
  Company Number: 163-10004-14074943

PATIENT
  Age: 57 Year
  Sex: Female
  Weight: 69.4 kg

DRUGS (14)
  1. FENTANYL. [Concomitant]
     Active Substance: FENTANYL
  2. OTEZLA [Suspect]
     Active Substance: APREMILAST
     Indication: HEADACHE
     Route: 048
     Dates: start: 20140721, end: 20140723
  3. CALCIUM [Concomitant]
     Active Substance: CALCIUM
  4. OTEZLA [Suspect]
     Active Substance: APREMILAST
     Indication: PSORIATIC ARTHROPATHY
     Route: 048
     Dates: start: 20140721, end: 20140723
  5. DIAZEPAM. [Concomitant]
     Active Substance: DIAZEPAM
  6. OTEZLA [Suspect]
     Active Substance: APREMILAST
     Indication: VOMITING
     Route: 048
     Dates: start: 20140721, end: 20140723
  7. OTEZLA [Suspect]
     Active Substance: APREMILAST
     Indication: ABDOMINAL PAIN UPPER
     Route: 048
     Dates: start: 20140721, end: 20140723
  8. AZITHROMYCIN [Concomitant]
     Active Substance: AZITHROMYCIN ANHYDROUS
  9. OTEZLA [Suspect]
     Active Substance: APREMILAST
     Indication: NAUSEA
     Route: 048
     Dates: start: 20140721, end: 20140723
  10. NUVIGIL(ARMODAFINIL) [Concomitant]
  11. VIVELLE DOT (ESTRADIOL) [Concomitant]
  12. PRISTIQ(DESVENLAFAXINE SUCCINATE) [Concomitant]
  13. TUMS [Concomitant]
     Active Substance: CALCIUM CARBONATE
  14. ABILIFY(ARIPRAZOLE) [Concomitant]

REACTIONS (3)
  - Abdominal pain upper [None]
  - Headache [None]
  - Vomiting [None]

NARRATIVE: CASE EVENT DATE: 20140721
